FAERS Safety Report 24171646 (Version 1)
Quarter: 2024Q3

REPORT INFORMATION
  Report Type: Spontaneous
  Country: US (occurrence: US)
  Receive Date: 20240805
  Receipt Date: 20240805
  Transmission Date: 20241016
  Serious: Yes (Hospitalization, Other)
  Sender: SANDOZ
  Company Number: US-SANDOZ-SDZ2024US069508

PATIENT
  Age: 73 Year
  Sex: Male

DRUGS (3)
  1. PREDNISONE [Suspect]
     Active Substance: PREDNISONE
     Dosage: 5 MG, QD
     Route: 065
  2. PREDNISONE [Suspect]
     Active Substance: PREDNISONE
     Indication: Eosinophilic pneumonia chronic
     Dosage: 60 MG, QD
     Route: 065
  3. METHYLPREDNISOLONE [Concomitant]
     Active Substance: METHYLPREDNISOLONE
     Indication: Product used for unknown indication
     Dosage: 40 MG, QD
     Route: 042

REACTIONS (6)
  - Parainfluenzae virus infection [Unknown]
  - Eosinophilic pneumonia chronic [Recovering/Resolving]
  - Condition aggravated [Recovering/Resolving]
  - Osteopenia [Unknown]
  - Insulin resistance [Unknown]
  - Insomnia [Unknown]
